FAERS Safety Report 8293960-2 (Version None)
Quarter: 2012Q2

REPORT INFORMATION
  Report Type: 
  Country: None (occurrence: None)
  Receive Date: 20120418
  Receipt Date: 20120410
  Transmission Date: 20120825
  Serious: Yes (Hospitalization)
  Sender: FDA-Public Use
  Company Number: US-BAYER-2011-087489

PATIENT
  Age: 33 Year
  Sex: Female
  Weight: 81.633 kg

DRUGS (12)
  1. YASMIN [Suspect]
     Indication: CONTRACEPTION
     Dosage: UNK
     Dates: start: 20011201, end: 20070201
  2. LEXAPRO [Concomitant]
     Dosage: 10 MG, QD
     Route: 048
  3. BENADRYL [Concomitant]
     Dosage: UNK UNK, PRN
     Route: 048
  4. CHANTIX [Concomitant]
     Indication: EX-TOBACCO USER
     Dosage: UNK
     Dates: start: 20061101, end: 20080101
  5. MORPHINE [Concomitant]
     Indication: PLEURITIC PAIN
  6. ALBUTEROL [Concomitant]
     Dosage: UNK UNK, PRN
  7. NYQUIL [Concomitant]
     Dosage: UNK UNK, PRN
     Route: 048
  8. NITROFURANTOIN [Concomitant]
     Indication: URINARY TRACT INFECTION
     Dosage: 100 MG, QD
     Route: 048
     Dates: start: 20070202, end: 20070209
  9. ATIVAN [Concomitant]
     Indication: ANXIETY
  10. PERCOCET [Concomitant]
     Dosage: 5/325 MG
  11. XANAX [Concomitant]
     Indication: ANXIETY
     Dosage: 0.5 MG, PRN
  12. TYLENOL (CAPLET) [Concomitant]
     Dosage: UNK UNK, PRN
     Route: 048

REACTIONS (7)
  - PULMONARY EMBOLISM [None]
  - EMOTIONAL DISTRESS [None]
  - INJURY [None]
  - DEEP VEIN THROMBOSIS [None]
  - GENERAL PHYSICAL HEALTH DETERIORATION [None]
  - PAIN [None]
  - ANXIETY [None]
